FAERS Safety Report 9576105 (Version 1)
Quarter: 2013Q4

REPORT INFORMATION
  Report Type: Spontaneous
  Country: US (occurrence: US)
  Receive Date: 20131001
  Receipt Date: 20131001
  Transmission Date: 20140711
  Serious: No
  Sender: FDA-Public Use
  Company Number: US-AMGEN-USASP2013001050

PATIENT
  Sex: Female
  Weight: 104.31 kg

DRUGS (15)
  1. ENBREL [Suspect]
     Indication: RHEUMATOID ARTHRITIS
     Dosage: 50 MG, ONCE A WEEK
     Route: 058
  2. MEDROL                             /00049601/ [Concomitant]
     Dosage: 4 MG, UNK
  3. XANAX [Concomitant]
     Dosage: 1 MG, UNK
  4. PLAQUENIL                          /00072602/ [Concomitant]
     Dosage: 200 MG, UNK
  5. NUVARING [Concomitant]
     Dosage: UNK
  6. ZYRTEC [Concomitant]
     Dosage: 10 MG, UNK
  7. LISINOPRIL [Concomitant]
     Dosage: 20 MG, UNK
  8. ACTONEL [Concomitant]
     Dosage: 75 MG, UNK
  9. GABAPENTIN [Concomitant]
     Dosage: 300 MG, UNK
  10. ZANTAC [Concomitant]
     Dosage: 150 MG, UNK
  11. CITRACAL PLUS [Concomitant]
     Dosage: UNK
  12. OXYCODONE [Concomitant]
     Dosage: 15 MG, UNK
  13. LEXAPRO [Concomitant]
     Dosage: 5 MG, UNK
  14. FISH OIL [Concomitant]
     Dosage: UNK
  15. BLACK COHOSH                       /01456801/ [Concomitant]
     Dosage: 160 MG, UNK

REACTIONS (1)
  - Drug ineffective [Unknown]
